FAERS Safety Report 9461406 (Version 1)
Quarter: 2013Q3

REPORT INFORMATION
  Report Type: Spontaneous
  Country: US (occurrence: US)
  Receive Date: 20130816
  Receipt Date: 20130816
  Transmission Date: 20140515
  Serious: No
  Sender: FDA-Public Use
  Company Number: US-TEVA-426460USA

PATIENT
  Sex: Female
  Weight: 90.8 kg

DRUGS (5)
  1. PROAIR HFA [Suspect]
     Route: 055
     Dates: start: 201302
  2. WARFARIN [Concomitant]
     Indication: DEEP VEIN THROMBOSIS
  3. OMEPRAZOLE [Concomitant]
     Indication: GASTROOESOPHAGEAL REFLUX DISEASE
  4. PRAVASTATIN [Concomitant]
     Indication: HYPERCHOLESTEROLAEMIA
  5. LISINOPRIL [Concomitant]
     Indication: HYPERTENSION

REACTIONS (2)
  - Drug ineffective [Recovered/Resolved]
  - Cough [Unknown]
